FAERS Safety Report 9676158 (Version 1)
Quarter: 2013Q4

REPORT INFORMATION
  Report Type: Spontaneous
  Country: US (occurrence: US)
  Receive Date: 20131107
  Receipt Date: 20131107
  Transmission Date: 20140711
  Serious: Yes (Other)
  Sender: FDA-Public Use
  Company Number: US-BAYER-2013-133300

PATIENT
  Age: 53 Year
  Sex: Male

DRUGS (1)
  1. CIPRO [Suspect]
     Indication: NEPHROLITHIASIS
     Dosage: 500 MG, ONCE
     Route: 048
     Dates: start: 20131008, end: 20131008

REACTIONS (7)
  - Pain in extremity [None]
  - Abasia [None]
  - Feeling abnormal [None]
  - Tendon pain [None]
  - Impaired work ability [None]
  - Disturbance in attention [None]
  - Quality of life decreased [None]
